FAERS Safety Report 7101218-X (Version None)
Quarter: 2010Q4

REPORT INFORMATION
  Report Type: 
  Country: None (occurrence: None)
  Receive Date: 20101115
  Receipt Date: 20100105
  Transmission Date: 20110411
  Serious: Yes (Other)
  Sender: FDA-Public Use
  Company Number: US-ASTRAZENECA-2009SE18554

PATIENT
  Age: 41 Year
  Sex: Male
  Weight: 97.5 kg

DRUGS (9)
  1. SEROQUEL [Suspect]
     Indication: BIPOLAR DISORDER
     Route: 048
     Dates: start: 20070122
  2. RISPERDAL [Concomitant]
     Dates: start: 20060629
  3. KLONOPIN [Concomitant]
     Dates: start: 20060914
  4. DEPAKOTE ER [Concomitant]
     Dates: start: 20061003
  5. LITHIUM CARBONATE [Concomitant]
     Dates: start: 20061003
  6. ABILIFY [Concomitant]
     Dates: start: 20061120
  7. PENTASA [Concomitant]
     Dates: start: 20061206
  8. GEODON [Concomitant]
  9. ZYPREXA [Concomitant]

REACTIONS (3)
  - BLOOD GLUCOSE INCREASED [None]
  - BREAST OPERATION [None]
  - TYPE 2 DIABETES MELLITUS [None]
